FAERS Safety Report 18118192 (Version 1)
Quarter: 2020Q3

REPORT INFORMATION
  Report Type: Report from Study
  Country: BR (occurrence: BR)
  Receive Date: 20200806
  Receipt Date: 20200806
  Transmission Date: 20201103
  Serious: Yes (Hospitalization, Other)
  Sender: FDA-Public Use
  Company Number: BR-BIOGEN-2019BI00787347

PATIENT
  Age: 39 Year
  Sex: Female
  Weight: 60 kg

DRUGS (2)
  1. TYSABRI [Suspect]
     Active Substance: NATALIZUMAB
     Indication: MULTIPLE SCLEROSIS
     Route: 042
     Dates: start: 201803, end: 201910
  2. OCREVUS [Suspect]
     Active Substance: OCRELIZUMAB
     Indication: MULTIPLE SCLEROSIS
     Route: 042
     Dates: start: 201803, end: 201910

REACTIONS (15)
  - Influenza [Recovered/Resolved]
  - Fatigue [Not Recovered/Not Resolved]
  - Anaphylactic reaction [Recovered/Resolved]
  - Respiratory arrest [Recovered/Resolved]
  - Tachycardia [Recovered/Resolved]
  - Blood pressure abnormal [Unknown]
  - Bradycardia [Unknown]
  - Muscle spasticity [Not Recovered/Not Resolved]
  - Dyspnoea [Unknown]
  - Hemiparesis [Unknown]
  - Oxygen saturation decreased [Recovered/Resolved]
  - Arrhythmia [Unknown]
  - Nervousness [Unknown]
  - Throat tightness [Recovered/Resolved]
  - Apnoea [Unknown]

NARRATIVE: CASE EVENT DATE: 2018
